FAERS Safety Report 6128103-4 (Version None)
Quarter: 2009Q1

REPORT INFORMATION
  Report Type: 
  Country: None (occurrence: None)
  Receive Date: 20090319
  Receipt Date: 20090304
  Transmission Date: 20090719
  Serious: Yes (Death)
  Sender: FDA-Public Use
  Company Number: 2009000009

PATIENT
  Age: 57 Year
  Sex: Male

DRUGS (5)
  1. ERLOTINIB (ERLOTINIB) (TABLET) (ERLOTINIB) [Suspect]
     Indication: LUNG ADENOCARCINOMA
     Dosage: (150 MG, QD), ORAL
     Route: 048
     Dates: start: 20080205, end: 20080316
  2. LACTOBACILLUS CASE I [Concomitant]
  3. FLOMOX (CEFCAPENE PIVOXIL HYDROCHLORIDE) [Concomitant]
  4. FERROMIA (FERROUS CITRATE) [Concomitant]
  5. POVIDONE IODINE [Concomitant]

REACTIONS (6)
  - DERMATITIS ACNEIFORM [None]
  - DYSGEUSIA [None]
  - LUNG ADENOCARCINOMA [None]
  - MALIGNANT NEOPLASM PROGRESSION [None]
  - PAIN OF SKIN [None]
  - STOMATITIS [None]
